FAERS Safety Report 7482344-2 (Version None)
Quarter: 2011Q2

REPORT INFORMATION
  Report Type: 
  Country: None (occurrence: None)
  Receive Date: 20110516
  Receipt Date: 20110510
  Transmission Date: 20111010
  Serious: No
  Sender: FDA-Public Use
  Company Number: US-PFIZER INC-2011100445

PATIENT
  Sex: Female
  Weight: 90.703 kg

DRUGS (3)
  1. PROTONIX [Suspect]
     Indication: GASTROOESOPHAGEAL REFLUX DISEASE
     Dosage: 40 MG, 1X/DAY
     Route: 048
     Dates: end: 20110509
  2. ZYPREXA [Concomitant]
     Indication: DEPRESSION
     Dosage: 2.5 MG, 1X/DAY
  3. FUROSEMIDE [Concomitant]
     Indication: FLUID RETENTION
     Dosage: 40 MG, 1X/DAY

REACTIONS (1)
  - DRUG EFFECT DECREASED [None]
